FAERS Safety Report 6195277-9 (Version None)
Quarter: 2009Q2

REPORT INFORMATION
  Report Type: 
  Country: None (occurrence: None)
  Receive Date: 20090515
  Receipt Date: 20090508
  Transmission Date: 20091009
  Serious: Yes (Hospitalization)
  Sender: FDA-Public Use
  Company Number: 1000006183

PATIENT
  Age: 82 Year
  Sex: Female

DRUGS (7)
  1. LEXAPRO [Suspect]
     Indication: DEPRESSION
     Dosage: 10 MG (10 MG, 1 IN 1 D), ORAL
     Route: 048
     Dates: start: 20090401, end: 20090503
  2. ARICEPT [Concomitant]
  3. LEVOTHYROXINE SODIUM [Concomitant]
  4. LISINOPRIL [Concomitant]
  5. VIVELLE-DOT [Concomitant]
  6. CLONIDINE [Concomitant]
  7. NAMENDA [Concomitant]

REACTIONS (3)
  - ABASIA [None]
  - DYSSTASIA [None]
  - NEUROPATHY PERIPHERAL [None]
